FAERS Safety Report 24249527 (Version 1)
Quarter: 2024Q3

REPORT INFORMATION
  Report Type: Spontaneous
  Country: US (occurrence: None)
  Receive Date: 20240823
  Receipt Date: 20240823
  Transmission Date: 20241017
  Serious: No
  Sender: Public
  Company Number: None

PATIENT
  Age: 37 Year
  Sex: Female
  Weight: 77.4 kg

DRUGS (8)
  1. DUPIXENT [Suspect]
     Active Substance: DUPILUMAB
     Indication: Dermatitis atopic
     Dosage: 300 MG EVERY TWO WEEKS SUBCUTANEOUS?
     Route: 058
     Dates: start: 20240702
  2. CLARITIN [Concomitant]
     Active Substance: LORATADINE
  3. VITAMIN C [Concomitant]
     Active Substance: ASCORBIC ACID
  4. FLONASE ALLERGY RELIEF [Concomitant]
     Active Substance: FLUTICASONE PROPIONATE
  5. LEVOFLOXACIN [Concomitant]
     Active Substance: LEVOFLOXACIN
  6. VITAMINS [Concomitant]
     Active Substance: VITAMINS
  7. SINGULAIR [Concomitant]
     Active Substance: MONTELUKAST SODIUM
  8. TYLENOL [Concomitant]
     Active Substance: ACETAMINOPHEN

REACTIONS (3)
  - Dry skin [None]
  - Urinary tract infection [None]
  - Skin discolouration [None]

NARRATIVE: CASE EVENT DATE: 20240822
